FAERS Safety Report 7916490-3 (Version None)
Quarter: 2011Q4

REPORT INFORMATION
  Report Type: 
  Country: None (occurrence: None)
  Receive Date: 20111114
  Receipt Date: 20111031
  Transmission Date: 20120403
  Serious: Yes (Other)
  Sender: FDA-Public Use
  Company Number: TPA2011A07280

PATIENT
  Age: 85 Year
  Sex: Male
  Weight: 63.7304 kg

DRUGS (5)
  1. LIPITOR [Suspect]
  2. METOPROLOL TARTRATE [Concomitant]
  3. DIOVAN [Concomitant]
  4. EXFORGE [Concomitant]
  5. ACTOPLUS MET [Suspect]
     Dosage: 2 IN 1 D, PER ORAL
     Route: 048

REACTIONS (3)
  - BLADDER CANCER [None]
  - BLOOD IRON DECREASED [None]
  - HAEMORRHAGE [None]
